FAERS Safety Report 18640110 (Version 2)
Quarter: 2021Q1

REPORT INFORMATION
  Report Type: Spontaneous
  Country: AR (occurrence: AR)
  Receive Date: 20201220
  Receipt Date: 20210111
  Transmission Date: 20210419
  Serious: No
  Sender: FDA-Public Use
  Company Number: AR-JNJFOC-20201207456

PATIENT
  Sex: Female

DRUGS (1)
  1. SIMPONI [Suspect]
     Active Substance: GOLIMUMAB
     Indication: PRODUCT USED FOR UNKNOWN INDICATION
     Dosage: 50.00 MG / 0.50 ML
     Route: 058
     Dates: start: 2016

REACTIONS (10)
  - Pain in extremity [Unknown]
  - Swelling [Not Recovered/Not Resolved]
  - Device deployment issue [Unknown]
  - Device issue [Unknown]
  - Needle issue [Unknown]
  - Underdose [Unknown]
  - Gait disturbance [Unknown]
  - Injection site pain [Unknown]
  - Erythema [Unknown]
  - Drug ineffective [Unknown]

NARRATIVE: CASE EVENT DATE: 202011
